FAERS Safety Report 25245223 (Version 1)
Quarter: 2025Q2

REPORT INFORMATION
  Report Type: Spontaneous
  Country: US (occurrence: US)
  Receive Date: 20250428
  Receipt Date: 20250428
  Transmission Date: 20250717
  Serious: Yes (Hospitalization)
  Sender: MYLAN
  Company Number: US-MYLANLABS-2025M1034830

PATIENT
  Age: 74 Year
  Sex: Female

DRUGS (4)
  1. AMIODARONE [Suspect]
     Active Substance: AMIODARONE
     Indication: Ventricular arrhythmia
  2. AMIODARONE [Suspect]
     Active Substance: AMIODARONE
     Route: 065
  3. AMIODARONE [Suspect]
     Active Substance: AMIODARONE
     Route: 065
  4. AMIODARONE [Suspect]
     Active Substance: AMIODARONE

REACTIONS (1)
  - Hyperammonaemia [Recovered/Resolved]
